FAERS Safety Report 4364221-9 (Version None)
Quarter: 2004Q2

REPORT INFORMATION
  Report Type: 
  Country: None (occurrence: None)
  Receive Date: 20040517
  Receipt Date: 20040303
  Transmission Date: 20050107
  Serious: No
  Sender: FDA-Public Use
  Company Number: S04-USA-01070-01

PATIENT
  Age: 79 Year
  Sex: Female

DRUGS (8)
  1. NAMENDA [Suspect]
     Indication: DEMENTIA ALZHEIMER'S TYPE
     Dosage: 10 MG QD PO
     Route: 048
     Dates: start: 20040302
  2. NAMENDA [Suspect]
     Indication: DEMENTIA ALZHEIMER'S TYPE
     Dosage: 5 MG QD PO
     Route: 048
     Dates: start: 20040224
  3. ARICEPT [Concomitant]
  4. ACTONEL [Concomitant]
  5. DITROPAN [Concomitant]
  6. SYNTHROID [Concomitant]
  7. LOTREL [Concomitant]
  8. HYOSCYAMINE [Concomitant]

REACTIONS (2)
  - ARTHRALGIA [None]
  - CONSTIPATION [None]
